FAERS Safety Report 9873136 (Version 2)
Quarter: 2014Q1

REPORT INFORMATION
  Report Type: Other
  Country: US (occurrence: US)
  Receive Date: 20140206
  Receipt Date: 20140206
  Transmission Date: 20141002
  Serious: No
  Sender: FDA-Public Use
  Company Number: US-ACORDA-ACO_100932_2013

PATIENT
  Sex: Male

DRUGS (2)
  1. AMPYRA [Suspect]
     Indication: MULTIPLE SCLEROSIS
     Dosage: 10 MG, BID
     Route: 048
     Dates: start: 2013
  2. TECFIDERA [Suspect]
     Indication: MULTIPLE SCLEROSIS
     Dosage: UNK
     Route: 065

REACTIONS (2)
  - Depression [Not Recovered/Not Resolved]
  - Flushing [Not Recovered/Not Resolved]
